FAERS Safety Report 24845176 (Version 1)
Quarter: 2025Q1

REPORT INFORMATION
  Report Type: Spontaneous
  Country: FR (occurrence: FR)
  Receive Date: 20250115
  Receipt Date: 20250115
  Transmission Date: 20250408
  Serious: Yes (Hospitalization)
  Sender: PFIZER
  Company Number: None

PATIENT
  Age: 50 Year
  Sex: Female

DRUGS (3)
  1. LINEZOLID [Suspect]
     Active Substance: LINEZOLID
     Indication: Sepsis
     Dosage: FREQ:12 H;
     Route: 042
     Dates: start: 20241208, end: 20250102
  2. LOVENOX [Suspect]
     Active Substance: ENOXAPARIN SODIUM
     Indication: Thrombosis prophylaxis
     Dosage: 1 DF, 1X/DAY
     Route: 030
     Dates: start: 20241208, end: 20250102
  3. MEROPENEM [Suspect]
     Active Substance: MEROPENEM
     Indication: Sepsis
     Dosage: FREQ:8 H;
     Route: 042
     Dates: start: 20241218

REACTIONS (2)
  - Rash maculo-papular [Not Recovered/Not Resolved]
  - Eosinophilia [Not Recovered/Not Resolved]

NARRATIVE: CASE EVENT DATE: 20241218
